FAERS Safety Report 9241442 (Version 1)
Quarter: 2013Q1

REPORT INFORMATION
  Report Type: Spontaneous
  Country: US (occurrence: None)
  Receive Date: 20121120
  Receipt Date: 20121120
  Transmission Date: 20140127
  Serious: No
  Sender: FDA-Public Use
  Company Number: 1000038134

PATIENT
  Age: 82 Year
  Sex: Female

DRUGS (4)
  1. VIIBRYD [Suspect]
     Indication: POST-TRAUMATIC STRESS DISORDER
     Route: 048
     Dates: start: 2011
  2. XANAX (ALPRAZOLAM) [Concomitant]
  3. OVER-THE-COUNTER ANTIOXIDANTS NOS [Concomitant]
  4. VITAMINS NOS  (VITAMINS NOS) [Concomitant]

REACTIONS (2)
  - Headache [None]
  - Off label use [None]
